FAERS Safety Report 9643955 (Version 2)
Quarter: 2013Q4

REPORT INFORMATION
  Report Type: Spontaneous
  Country: IT (occurrence: None)
  Receive Date: 20131023
  Receipt Date: 20131226
  Transmission Date: 20140711
  Serious: Yes (Other)
  Sender: FDA-Public Use
  Company Number: 2013AP008945

PATIENT
  Age: 45 Year
  Sex: Female

DRUGS (10)
  1. CLARITHROMYCIN (CLARITHROMYCIN) [Suspect]
     Route: 048
     Dates: start: 20130915, end: 20130915
  2. OMEPRAZOLE (OMEPRAZOLE) [Suspect]
     Dates: start: 20130915, end: 20130915
  3. NORMIX [Suspect]
     Route: 048
     Dates: start: 20130915, end: 20130915
  4. VALIUM (DIAZEPAM) [Suspect]
     Route: 048
     Dates: start: 20130915, end: 20130915
  5. AMBROMUCIL [Suspect]
     Route: 048
     Dates: start: 20130915, end: 20130915
  6. NOVALGINA [Suspect]
     Route: 048
     Dates: start: 20130915, end: 20130915
  7. ZYLORIC [Suspect]
     Route: 048
     Dates: start: 20130915, end: 20130915
  8. HALDOL [Suspect]
     Route: 048
     Dates: start: 20130915, end: 20130915
  9. IMPROMEN [Suspect]
     Route: 048
     Dates: start: 20130915, end: 20130915
  10. DISIPAL [Suspect]
     Dates: start: 20130915, end: 20130915

REACTIONS (4)
  - Confusional state [None]
  - Intentional self-injury [None]
  - Psychomotor retardation [None]
  - Drug abuse [None]
